FAERS Safety Report 7692975-2 (Version None)
Quarter: 2011Q3

REPORT INFORMATION
  Report Type: 
  Country: None (occurrence: None)
  Receive Date: 20110819
  Receipt Date: 20110811
  Transmission Date: 20111222
  Serious: Yes (Hospitalization, Other)
  Sender: FDA-Public Use
  Company Number: US-NOVOPROD-333418

PATIENT
  Age: 71 Year
  Sex: Male

DRUGS (1)
  1. VICTOZA [Suspect]
     Indication: TYPE 2 DIABETES MELLITUS
     Dosage: UNK
     Route: 058
     Dates: start: 20110330, end: 20110719

REACTIONS (9)
  - DEEP VEIN THROMBOSIS [None]
  - DEHYDRATION [None]
  - WEIGHT DECREASED [None]
  - DIARRHOEA [None]
  - THROMBOPHLEBITIS SUPERFICIAL [None]
  - PANCREATIC CARCINOMA METASTATIC [None]
  - PRESYNCOPE [None]
  - DECREASED APPETITE [None]
  - NAUSEA [None]
